FAERS Safety Report 11022152 (Version 1)
Quarter: 2015Q2

REPORT INFORMATION
  Report Type: Spontaneous
  Country: CH (occurrence: CH)
  Receive Date: 20150413
  Receipt Date: 20150413
  Transmission Date: 20150821
  Serious: Yes (Hospitalization, Other)
  Sender: FDA-Public Use
  Company Number: CH-GLAXOSMITHKLINE-CH2015045976

PATIENT
  Age: 59 Year
  Sex: Male

DRUGS (18)
  1. PHENHYDAN [Suspect]
     Active Substance: PHENYTOIN
     Indication: PARTIAL SEIZURES
     Route: 048
     Dates: start: 20150130, end: 20150306
  2. RIVOTRIL [Concomitant]
     Active Substance: CLONAZEPAM
     Indication: PARTIAL SEIZURES
     Route: 040
     Dates: start: 20150130, end: 20150130
  3. NOVALGIN [Concomitant]
     Active Substance: METAMIZOLE SODIUM
     Indication: POSTOPERATIVE ANALGESIA
     Route: 048
     Dates: start: 201501, end: 20150311
  4. ULTIVA [Concomitant]
     Active Substance: REMIFENTANIL HYDROCHLORIDE
     Indication: CRANIOTOMY
     Route: 042
     Dates: start: 20150115, end: 20150115
  5. KEPPRA [Suspect]
     Active Substance: LEVETIRACETAM
     Indication: PARTIAL SEIZURES
     Route: 048
     Dates: start: 20150127, end: 20150306
  6. PHENHYDAN [Suspect]
     Active Substance: PHENYTOIN
     Indication: PARTIAL SEIZURES
     Route: 042
  7. PRIMPERAN [Concomitant]
     Active Substance: METOCLOPRAMIDE HYDROCHLORIDE
     Route: 048
     Dates: start: 201501, end: 201501
  8. PANTOZOL [Concomitant]
     Active Substance: PANTOPRAZOLE SODIUM
     Indication: GASTROOESOPHAGEAL REFLUX PROPHYLAXIS
     Route: 048
     Dates: start: 201501, end: 20150309
  9. ESMERON [Concomitant]
     Active Substance: ROCURONIUM BROMIDE
     Indication: CRANIOTOMY
     Route: 040
     Dates: start: 20150115, end: 20150115
  10. ZOFRAN [Concomitant]
     Active Substance: ONDANSETRON HYDROCHLORIDE
     Indication: CRANIOTOMY
     Route: 042
     Dates: start: 20150115, end: 20150116
  11. FENTANYL. [Concomitant]
     Active Substance: FENTANYL
     Indication: CRANIOTOMY
     Route: 040
     Dates: start: 20150115, end: 20150116
  12. URBANYL [Concomitant]
     Active Substance: CLOBAZAM
     Indication: PARTIAL SEIZURES
     Route: 048
     Dates: start: 20150129, end: 20150204
  13. EPHEDRIN [Concomitant]
     Active Substance: EPHEDRINE HYDROCHLORIDE
     Indication: CRANIOTOMY
     Route: 040
     Dates: start: 20150115, end: 20150115
  14. ZINACEF [Suspect]
     Active Substance: CEFUROXIME SODIUM
     Indication: ANTIBIOTIC PROPHYLAXIS
     Route: 041
     Dates: start: 20150115, end: 20150115
  15. MANNITOL. [Concomitant]
     Active Substance: MANNITOL
     Indication: CRANIOTOMY
     Route: 042
     Dates: start: 20150115, end: 20150115
  16. PERFALGAN INFUSIONSLOESUNG [Concomitant]
     Indication: POSTOPERATIVE ANALGESIA
     Route: 041
     Dates: start: 201501, end: 201502
  17. DISOPRIVAN [Concomitant]
     Active Substance: PROPOFOL
     Indication: CRANIOTOMY
     Route: 041
     Dates: start: 20150115, end: 20150115
  18. FRAXIPARINE [Concomitant]
     Active Substance: NADROPARIN CALCIUM
     Indication: THROMBOSIS PROPHYLAXIS
     Route: 058
     Dates: start: 201501, end: 201501

REACTIONS (8)
  - Drug reaction with eosinophilia and systemic symptoms [Recovering/Resolving]
  - Rash maculo-papular [Recovering/Resolving]
  - Pruritus [Recovered/Resolved]
  - Lymphocyte morphology abnormal [Recovered/Resolved]
  - Arthralgia [Recovered/Resolved]
  - Eosinophilia [Recovered/Resolved]
  - Hepatitis [Recovering/Resolving]
  - Pyrexia [Recovered/Resolved]

NARRATIVE: CASE EVENT DATE: 201502
